FAERS Safety Report 8409142-7 (Version None)
Quarter: 2012Q2

REPORT INFORMATION
  Report Type: 
  Country: None (occurrence: None)
  Receive Date: 20120604
  Receipt Date: 20120601
  Transmission Date: 20120825
  Serious: Yes (Hospitalization, Other)
  Sender: FDA-Public Use
  Company Number: US-AMGEN-USASP2011039858

PATIENT
  Age: 53 Year
  Sex: Male

DRUGS (6)
  1. NAPROXEN [Concomitant]
     Dosage: 500 MG, UNK
     Route: 048
  2. PLAQUENIL [Concomitant]
     Dosage: 200 MG, UNK
     Route: 048
  3. PREDNISONE [Concomitant]
     Dosage: 25 MG, UNK
     Route: 048
  4. ENBREL [Suspect]
     Indication: RHEUMATOID ARTHRITIS
     Dosage: 50 MG, QWK
     Dates: start: 19980101
  5. PROZAC [Concomitant]
     Dosage: 20 MG, UNK
     Route: 048
  6. XANAX [Concomitant]
     Dosage: 25 MG, PRN
     Route: 048

REACTIONS (6)
  - INJECTION SITE MASS [None]
  - HIP ARTHROPLASTY [None]
  - SHOULDER ARTHROPLASTY [None]
  - INJECTION SITE EXTRAVASATION [None]
  - FOOT OPERATION [None]
  - SPINAL FUSION SURGERY [None]
